FAERS Safety Report 9714020 (Version 1)
Quarter: 2013Q4

REPORT INFORMATION
  Report Type: Spontaneous
  Country: US (occurrence: US)
  Receive Date: 20131126
  Receipt Date: 20131126
  Transmission Date: 20140711
  Serious: No
  Sender: FDA-Public Use
  Company Number: US-GILEAD-2008-0018592

PATIENT
  Sex: Male
  Weight: 86.18 kg

DRUGS (13)
  1. LETAIRIS [Suspect]
     Indication: PULMONARY ARTERIAL HYPERTENSION
     Route: 048
     Dates: start: 20080911, end: 20081015
  2. NORVASC [Concomitant]
  3. ADULT LOW ASPIRIN [Concomitant]
  4. TENORMIN [Concomitant]
  5. ASTELIN [Concomitant]
  6. ALTACE [Concomitant]
  7. AFRIN [Concomitant]
  8. SIMVASTATIN [Concomitant]
  9. WARFARIN SODIUM [Concomitant]
  10. COMBIVENT INHALER [Concomitant]
  11. ACTOS [Concomitant]
  12. OMEPRAZOLE [Concomitant]
  13. VITAMIN B-12 [Concomitant]

REACTIONS (1)
  - Palpitations [None]
